FAERS Safety Report 10016368 (Version 2)
Quarter: 2014Q2

REPORT INFORMATION
  Report Type: Report from Study
  Country: US (occurrence: US)
  Receive Date: 20140317
  Receipt Date: 20140424
  Transmission Date: 20141212
  Serious: Yes (Other)
  Sender: FDA-Public Use
  Company Number: US-ABBVIE-14P-163-1210392-00

PATIENT
  Sex: Female
  Weight: 64.01 kg

DRUGS (12)
  1. HUMIRA [Suspect]
     Indication: RHEUMATOID ARTHRITIS
     Dosage: 90 DAYS, 3 REFILLS
     Route: 058
     Dates: start: 2008, end: 201311
  2. METHOTREXATE [Concomitant]
     Indication: RHEUMATOID ARTHRITIS
     Dosage: 10 TABS ONCE WEEKLY
  3. FOLIC ACID [Concomitant]
     Indication: VITAMIN SUPPLEMENTATION
  4. CITRACAL [Concomitant]
     Indication: PRODUCT USED FOR UNKNOWN INDICATION
  5. MULTIVITAMIN [Concomitant]
     Indication: VITAMIN SUPPLEMENTATION
     Dosage: 1 EVERY MORNING
  6. NORCO [Concomitant]
     Indication: PROCEDURAL PAIN
  7. SENNA [Concomitant]
     Indication: CONSTIPATION
  8. ASPIRIN [Concomitant]
     Indication: THROMBOSIS PROPHYLAXIS
     Dates: start: 201402
  9. ALEVE [Concomitant]
     Indication: PRODUCT USED FOR UNKNOWN INDICATION
  10. ALEVE [Concomitant]
     Dosage: 2 TABS DAILY AT LUNCH
  11. FERROUS SULFATE [Concomitant]
     Indication: PRODUCT USED FOR UNKNOWN INDICATION
     Dosage: 325 (65 FE) MG TABS, ONCE DAILY
  12. ORTHO NOVUM [Concomitant]
     Indication: CONTRACEPTION
     Dosage: DAILY

REACTIONS (8)
  - Device dislocation [Recovered/Resolved]
  - Uterine leiomyoma [Recovered/Resolved]
  - Arthralgia [Recovering/Resolving]
  - Musculoskeletal pain [Unknown]
  - Pain in extremity [Unknown]
  - Pica [Unknown]
  - Haemoglobin decreased [Unknown]
  - Menstruation irregular [Unknown]
